FAERS Safety Report 7652933-0 (Version None)
Quarter: 2011Q3

REPORT INFORMATION
  Report Type: 
  Country: None (occurrence: None)
  Receive Date: 20110803
  Receipt Date: 20110704
  Transmission Date: 20111222
  Serious: No
  Sender: FDA-Public Use
  Company Number: US-BAYER-2011-059831

PATIENT
  Age: 20 Year
  Sex: Female
  Weight: 75 kg

DRUGS (1)
  1. ALEVE (CAPLET) [Suspect]
     Indication: HEADACHE
     Dosage: UNK DF, UNK
     Route: 048

REACTIONS (4)
  - SENSATION OF HEAVINESS [None]
  - DYSPNOEA [None]
  - SOMNOLENCE [None]
  - MEDICATION ERROR [None]
